FAERS Safety Report 9216250 (Version 2)
Quarter: 2013Q2

REPORT INFORMATION
  Report Type: Report from Study
  Country: AU (occurrence: AU)
  Receive Date: 20130408
  Receipt Date: 20130517
  Transmission Date: 20140414
  Serious: Yes (Life-Threatening, Hospitalization)
  Sender: FDA-Public Use
  Company Number: AU-MILLENNIUM PHARMACEUTICALS, INC.-2013-02563

PATIENT
  Sex: 0

DRUGS (14)
  1. VELCADE [Suspect]
     Indication: PLASMA CELL MYELOMA
     Dosage: 2.4 MG, UNK
     Route: 065
     Dates: start: 20120710, end: 20120831
  2. CYCLOPHOSPHAMIDE [Suspect]
     Indication: PLASMA CELL MYELOMA
     Dosage: 550 MG, UNK
     Route: 065
     Dates: start: 20120710, end: 20120904
  3. THALIDOMIDE [Suspect]
     Indication: PLASMA CELL MYELOMA
     Dosage: 100 MG, UNK
     Route: 065
     Dates: start: 20130228, end: 20130331
  4. LIPITOR [Concomitant]
     Indication: HYPERCHOLESTEROLAEMIA
  5. CANDESARTAN [Concomitant]
     Indication: HYPERTENSION
  6. NATRILIX                           /00340101/ [Concomitant]
     Indication: HYPERTENSION
  7. PARIET [Concomitant]
     Indication: GASTROOESOPHAGEAL REFLUX DISEASE
  8. ZOLEDRONIC ACID [Concomitant]
     Indication: PROPHYLAXIS
     Dosage: UNK
     Dates: start: 20120614
  9. SODIUM BICARBONATE [Concomitant]
     Indication: PROPHYLAXIS
     Dosage: UNK
     Dates: start: 20120710
  10. ASPIRIN [Concomitant]
     Indication: THROMBOSIS PROPHYLAXIS
     Dosage: UNK
     Dates: start: 20130103
  11. BACTRIM [Concomitant]
     Indication: PROPHYLAXIS
     Dosage: UNK
     Dates: start: 20130103
  12. ALLOPURINOL [Concomitant]
  13. DOCUSATE SODIUM\SENNOSIDES [Concomitant]
     Indication: CONSTIPATION
  14. MOVICOL                            /01053601/ [Concomitant]
     Indication: CONSTIPATION

REACTIONS (1)
  - Pneumonia [Recovered/Resolved with Sequelae]
